FAERS Safety Report 16924424 (Version 1)
Quarter: 2019Q4

REPORT INFORMATION
  Report Type: Spontaneous
  Country: US (occurrence: US)
  Receive Date: 20191016
  Receipt Date: 20191016
  Transmission Date: 20200122
  Serious: No
  Sender: FDA-Public Use
  Company Number: US-TEVA-2019-US-1116049

PATIENT
  Sex: Female

DRUGS (1)
  1. AUSTEDO [Suspect]
     Active Substance: DEUTETRABENAZINE
     Route: 048
     Dates: start: 2018

REACTIONS (4)
  - Weight decreased [Unknown]
  - Amnesia [Unknown]
  - Patient dissatisfaction with treatment [Unknown]
  - Malaise [Unknown]
